FAERS Safety Report 5567860-2 (Version None)
Quarter: 2007Q4

REPORT INFORMATION
  Report Type: 
  Country: None (occurrence: None)
  Receive Date: 20071220
  Receipt Date: 20071211
  Transmission Date: 20080405
  Serious: Yes (Hospitalization)
  Sender: FDA-Public Use
  Company Number: US-ELI_LILLY_AND_COMPANY-US200708001610

PATIENT
  Sex: Male
  Weight: 120.18 kg

DRUGS (1)
  1. ZYPREXA [Suspect]
     Dates: start: 20060601

REACTIONS (1)
  - MYOCARDIAL INFARCTION [None]
